FAERS Safety Report 6407093-0 (Version None)
Quarter: 2009Q4

REPORT INFORMATION
  Report Type: 
  Country: None (occurrence: None)
  Receive Date: 20091020
  Receipt Date: 20091009
  Transmission Date: 20100525
  Serious: Yes (Other)
  Sender: FDA-Public Use
  Company Number: DE-NOVOPROD-289356

PATIENT
  Sex: Male
  Weight: 13.7 kg

DRUGS (2)
  1. NORDITROPIN [Suspect]
     Indication: GROWTH HORMONE DEFICIENCY
     Dosage: .3 MG, QD
     Route: 058
     Dates: start: 20081117, end: 20090526
  2. NORDITROPIN [Suspect]
     Indication: SMALL FOR DATES BABY

REACTIONS (2)
  - COUGH [None]
  - DYSPHONIA [None]
